FAERS Safety Report 14242507 (Version 2)
Quarter: 2017Q4

REPORT INFORMATION
  Report Type: Report from Study
  Country: PA (occurrence: PA)
  Receive Date: 20171201
  Receipt Date: 20171217
  Transmission Date: 20180321
  Serious: Yes (Other)
  Sender: FDA-Public Use
  Company Number: PHHY2015PA177347

PATIENT
  Sex: Female
  Weight: 57.6 kg

DRUGS (2)
  1. LAMOTRIGINE. [Concomitant]
     Active Substance: LAMOTRIGINE
     Indication: PRODUCT USED FOR UNKNOWN INDICATION
     Dosage: UNK
     Route: 065
  2. GILENYA [Suspect]
     Active Substance: FINGOLIMOD HYDROCHLORIDE
     Indication: MULTIPLE SCLEROSIS
     Dosage: 0.5 MG, QD
     Route: 048

REACTIONS (7)
  - Gastrointestinal infection [Recovered/Resolved]
  - Abdominal discomfort [Unknown]
  - Mouth swelling [Unknown]
  - Oral disorder [Unknown]
  - Oral pain [Unknown]
  - Hypophagia [Unknown]
  - Malaise [Unknown]
